FAERS Safety Report 14498106 (Version 1)
Quarter: 2018Q1

REPORT INFORMATION
  Report Type: Report from Study
  Country: US (occurrence: US)
  Receive Date: 20180207
  Receipt Date: 20180207
  Transmission Date: 20180509
  Serious: Yes (Hospitalization)
  Sender: FDA-Public Use
  Company Number: US-ACTELION-A-NJ2017-154882

PATIENT
  Age: 41 Year
  Sex: Female

DRUGS (15)
  1. GLUCOPHAGE [Concomitant]
     Active Substance: METFORMIN HYDROCHLORIDE
  2. SYNTHROID [Concomitant]
     Active Substance: LEVOTHYROXINE SODIUM
  3. ADVAIR HFA [Concomitant]
     Active Substance: FLUTICASONE PROPIONATE\SALMETEROL XINAFOATE
  4. FLUTICASONE PROPIONATE. [Concomitant]
     Active Substance: FLUTICASONE PROPIONATE
  5. LASIX [Concomitant]
     Active Substance: FUROSEMIDE
  6. UPTRAVI [Concomitant]
     Active Substance: SELEXIPAG
  7. COUMADIN [Concomitant]
     Active Substance: WARFARIN SODIUM
  8. PREDNISONE. [Concomitant]
     Active Substance: PREDNISONE
  9. OPSUMIT [Suspect]
     Active Substance: MACITENTAN
     Indication: PULMONARY ARTERIAL HYPERTENSION
     Dosage: 10 MG, QD
     Route: 048
     Dates: start: 20160127
  10. PROMETHAZINE - CODEINE [Concomitant]
     Active Substance: CODEINE\PROMETHAZINE
  11. ADEMPAS [Concomitant]
     Active Substance: RIOCIGUAT
  12. TOPROL XL [Concomitant]
     Active Substance: METOPROLOL SUCCINATE
  13. TESSALON [Concomitant]
     Active Substance: BENZONATATE
  14. LORATADINE. [Concomitant]
     Active Substance: LORATADINE
  15. SPIRIVA [Concomitant]
     Active Substance: TIOTROPIUM BROMIDE MONOHYDRATE

REACTIONS (11)
  - White blood cell count decreased [Not Recovered/Not Resolved]
  - Platelet count decreased [Not Recovered/Not Resolved]
  - Oedema peripheral [Recovering/Resolving]
  - Haemoglobin decreased [Not Recovered/Not Resolved]
  - Ascites [Recovering/Resolving]
  - Dysphonia [Not Recovered/Not Resolved]
  - Pyrexia [Recovered/Resolved]
  - Tooth infection [Recovering/Resolving]
  - Productive cough [Recovering/Resolving]
  - Fluid retention [Recovering/Resolving]
  - Oropharyngeal pain [Recovering/Resolving]

NARRATIVE: CASE EVENT DATE: 20161031
